FAERS Safety Report 12926700 (Version 1)
Quarter: 2016Q4

REPORT INFORMATION
  Report Type: Spontaneous
  Country: CN (occurrence: CN)
  Receive Date: 20161108
  Receipt Date: 20161108
  Transmission Date: 20170207
  Serious: Yes (Other)
  Sender: FDA-Public Use
  Company Number: CN-ASTRAZENECA-2016SF17350

PATIENT
  Age: 15341 Day
  Sex: Female
  Weight: 50 kg

DRUGS (2)
  1. ESOMEPRAZOLE MAGNESIUM. [Suspect]
     Active Substance: ESOMEPRAZOLE MAGNESIUM
     Indication: HYPERCHLORHYDRIA
     Route: 048
     Dates: start: 20160623, end: 20160624
  2. COLLOIDAL BISTMUTH PECTIN [Concomitant]
     Indication: GASTROINTESTINAL MUCOSAL DISORDER
     Route: 048
     Dates: start: 20160623, end: 20160623

REACTIONS (4)
  - Salivary hypersecretion [Recovering/Resolving]
  - Dyspepsia [Recovering/Resolving]
  - Anxiety [Unknown]
  - Regurgitation [Unknown]

NARRATIVE: CASE EVENT DATE: 20160623
